FAERS Safety Report 6600696-X (Version None)
Quarter: 2010Q1

REPORT INFORMATION
  Report Type: 
  Country: None (occurrence: None)
  Receive Date: 20100223
  Receipt Date: 20100223
  Transmission Date: 20100710
  Serious: Yes (Disabling)
  Sender: FDA-Public Use
  Company Number: None

PATIENT
  Age: 43 Year
  Sex: Female
  Weight: 68.0396 kg

DRUGS (1)
  1. CARAC [Suspect]
     Indication: PRECANCEROUS SKIN LESION
     Dosage: 1 PEA SIZE AMOUNT QD TOP
     Route: 061
     Dates: start: 20100102, end: 20100127

REACTIONS (3)
  - JOINT SWELLING [None]
  - LOCAL SWELLING [None]
  - TYPE III IMMUNE COMPLEX MEDIATED REACTION [None]
